FAERS Safety Report 24188052 (Version 4)
Quarter: 2024Q4

REPORT INFORMATION
  Report Type: Report from Study
  Country: BR (occurrence: BR)
  Receive Date: 20240808
  Receipt Date: 20241205
  Transmission Date: 20250115
  Serious: Yes (Other)
  Sender: NOVARTIS
  Company Number: BR-002147023-NVSC2023BR272928

PATIENT
  Sex: Female

DRUGS (5)
  1. KISQALI [Suspect]
     Active Substance: RIBOCICLIB
     Indication: Invasive breast carcinoma
     Dosage: 3 DOSAGE FORM, QD
     Route: 065
  2. KISQALI [Suspect]
     Active Substance: RIBOCICLIB
     Dosage: 3 DOSAGE FORM, QD
     Route: 065
  3. KISQALI [Suspect]
     Active Substance: RIBOCICLIB
     Dosage: UNK (STARTED THE 7-DAY BREAK ON 24 SEP 024)
     Route: 065
     Dates: start: 20240901, end: 20240923
  4. LETROZOLE [Suspect]
     Active Substance: LETROZOLE
     Indication: Hormone level abnormal
     Dosage: UNK
     Route: 065
  5. MINERALS\VITAMINS [Concomitant]
     Active Substance: MINERALS\VITAMINS
     Indication: Product used for unknown indication
     Dosage: UNK
     Route: 065

REACTIONS (22)
  - Metastases to bone [Recovering/Resolving]
  - Decreased immune responsiveness [Unknown]
  - Memory impairment [Not Recovered/Not Resolved]
  - Feeling abnormal [Unknown]
  - Laziness [Not Recovered/Not Resolved]
  - Vision blurred [Not Recovered/Not Resolved]
  - Arthralgia [Unknown]
  - Back pain [Recovering/Resolving]
  - Eating disorder [Recovered/Resolved]
  - Diarrhoea [Recovered/Resolved]
  - Abdominal pain upper [Recovered/Resolved]
  - Taste disorder [Not Recovered/Not Resolved]
  - Fatigue [Unknown]
  - Malaise [Recovered/Resolved]
  - Bradykinesia [Unknown]
  - Retching [Recovered/Resolved]
  - Illness [Recovered/Resolved]
  - Weight increased [Unknown]
  - Blood cholesterol increased [Unknown]
  - Mood altered [Unknown]
  - Abdominal distension [Recovered/Resolved]
  - Product dose omission in error [Recovered/Resolved]
